FAERS Safety Report 20062427 (Version 7)
Quarter: 2022Q4

REPORT INFORMATION
  Report Type: Spontaneous
  Country: US (occurrence: US)
  Receive Date: 20211112
  Receipt Date: 20221229
  Transmission Date: 20230113
  Serious: Yes (Other)
  Sender: FDA-Public Use
  Company Number: US-PFIZER INC-202101495761

PATIENT
  Age: 65 Year
  Sex: Female

DRUGS (5)
  1. INLYTA [Suspect]
     Active Substance: AXITINIB
     Dosage: 5 MG
     Dates: start: 20201111
  2. INLYTA [Suspect]
     Active Substance: AXITINIB
     Dosage: UNK
     Dates: start: 20210924
  3. INLYTA [Suspect]
     Active Substance: AXITINIB
     Dosage: 1 MG
  4. INLYTA [Suspect]
     Active Substance: AXITINIB
     Dosage: 5 MG, CYCLIC (5MG DAILY FOR 28 DAYS ON AND 14 DAYS OFF)
  5. KEYTRUDA [Concomitant]
     Active Substance: PEMBROLIZUMAB
     Dosage: UNK

REACTIONS (30)
  - Hyperglycaemia [Unknown]
  - Gallbladder hypofunction [Unknown]
  - Off label use [Unknown]
  - Fatigue [Unknown]
  - Hypersomnia [Unknown]
  - Gait disturbance [Unknown]
  - Tongue injury [Unknown]
  - Speech disorder [Unknown]
  - Oxygen consumption increased [Unknown]
  - Blister [Unknown]
  - Hyperkeratosis [Unknown]
  - Dyspnoea [Recovered/Resolved]
  - Palmar-plantar erythrodysaesthesia syndrome [Unknown]
  - Stomatitis [Unknown]
  - Dysphonia [Not Recovered/Not Resolved]
  - Dizziness [Unknown]
  - Urinary tract infection [Unknown]
  - Abdominal distension [Unknown]
  - Haemorrhoids [Unknown]
  - Throat irritation [Unknown]
  - Asthma [Unknown]
  - Cystitis [Unknown]
  - Muscle strain [Unknown]
  - Pain in extremity [Unknown]
  - Taste disorder [Unknown]
  - Gastrointestinal pain [Unknown]
  - Diarrhoea [Unknown]
  - COVID-19 [Unknown]
  - Rhinorrhoea [Unknown]
  - Cough [Unknown]

NARRATIVE: CASE EVENT DATE: 20220622
